FAERS Safety Report 10663192 (Version 1)
Quarter: 2014Q4

REPORT INFORMATION
  Report Type: Spontaneous
  Country: US (occurrence: US)
  Receive Date: 20141218
  Receipt Date: 20141218
  Transmission Date: 20150529
  Serious: No
  Sender: FDA-Public Use
  Company Number: US-GALDERMA-US14003502

PATIENT
  Age: 16 Year
  Sex: Female

DRUGS (1)
  1. MIRVASO [Suspect]
     Active Substance: BRIMONIDINE TARTRATE
     Dosage: 0.33%
     Route: 061

REACTIONS (5)
  - Dizziness [Recovered/Resolved]
  - Drug administered to patient of inappropriate age [Recovered/Resolved]
  - Vision blurred [Recovered/Resolved]
  - Headache [Not Recovered/Not Resolved]
  - Malaise [Recovered/Resolved]
